FAERS Safety Report 6663189-X (Version None)
Quarter: 2010Q2

REPORT INFORMATION
  Report Type: 
  Country: None (occurrence: None)
  Receive Date: 20100401
  Receipt Date: 20100322
  Transmission Date: 20101027
  Serious: No
  Sender: FDA-Public Use
  Company Number: PHHY2010DE11156

PATIENT
  Sex: Female

DRUGS (2)
  1. CYCLOSPORINE [Suspect]
     Indication: ANGIOEDEMA
     Dosage: 200 MG/DAY
     Route: 048
     Dates: start: 20091105, end: 20100126
  2. CYCLOSPORINE [Suspect]
     Indication: URTICARIA CHRONIC

REACTIONS (3)
  - AMENORRHOEA [None]
  - CYSTITIS [None]
  - HYPERTRICHOSIS [None]
